FAERS Safety Report 6048460-7 (Version None)
Quarter: 2009Q1

REPORT INFORMATION
  Report Type: 
  Country: None (occurrence: None)
  Receive Date: 20090123
  Receipt Date: 20090116
  Transmission Date: 20090719
  Serious: Yes (Hospitalization)
  Sender: FDA-Public Use
  Company Number: A0764678A

PATIENT
  Age: 58 Year
  Sex: Female
  Weight: 84.5 kg

DRUGS (2)
  1. AVANDIA [Suspect]
     Route: 048
  2. ASPIRIN [Concomitant]

REACTIONS (3)
  - ARRHYTHMIA [None]
  - CARDIAC FAILURE CONGESTIVE [None]
  - MACULAR OEDEMA [None]
